FAERS Safety Report 16660891 (Version 1)
Quarter: 2019Q3

REPORT INFORMATION
  Report Type: Spontaneous
  Country: US (occurrence: US)
  Receive Date: 20190619
  Receipt Date: 20190619
  Transmission Date: 20191004
  Serious: No
  Sender: FDA-Public Use
  Company Number: None

PATIENT
  Age: 51 Year
  Sex: Male

DRUGS (1)
  1. TREMFYA [Suspect]
     Active Substance: GUSELKUMAB
     Indication: PSORIASIS
     Dosage: 100MG EVERY 8 WEEKS SUBCUTANEOUSLY
     Route: 058
     Dates: start: 20190611

REACTIONS (2)
  - Incorrect dose administered [None]
  - Injection site haemorrhage [None]

NARRATIVE: CASE EVENT DATE: 20190611
